FAERS Safety Report 8341097-6 (Version None)
Quarter: 2012Q2

REPORT INFORMATION
  Report Type: 
  Country: None (occurrence: None)
  Receive Date: 20120507
  Receipt Date: 20120501
  Transmission Date: 20120825
  Serious: Yes (Death)
  Sender: FDA-Public Use
  Company Number: US-GLAXOSMITHKLINE-A0948367A

PATIENT
  Age: 89 Year
  Sex: Male
  Weight: 65.9 kg

DRUGS (1)
  1. ADVAIR DISKUS 100/50 [Suspect]
     Indication: PRODUCT USED FOR UNKNOWN INDICATION
     Route: 055
     Dates: start: 20081226, end: 20111003

REACTIONS (1)
  - DEATH [None]
